FAERS Safety Report 21789579 (Version 1)
Quarter: 2022Q4

REPORT INFORMATION
  Report Type: Spontaneous
  Country: US (occurrence: None)
  Receive Date: 20221228
  Receipt Date: 20221228
  Transmission Date: 20230112
  Serious: Yes (Other)
  Sender: FDA-Public Use
  Company Number: 2022A413573

PATIENT
  Sex: Female
  Weight: 83.5 kg

DRUGS (2)
  1. BYETTA [Suspect]
     Active Substance: EXENATIDE
     Dosage: STARTED 30 YEARS AGO, START DATE IS UNKNOWN UNKNOWN
     Route: 065
  2. BYDUREON BCISE [Suspect]
     Active Substance: EXENATIDE
     Indication: Weight decreased
     Dosage: HAS BEEN USING IT FOR ONE-MONTH, EXACT DATE IS UNKNOWN
     Route: 058

REACTIONS (8)
  - Neoplasm malignant [Unknown]
  - Injection site haemorrhage [Unknown]
  - Injection site bruising [Unknown]
  - Weight increased [Unknown]
  - Weight decreased [Unknown]
  - Blood glucose decreased [Unknown]
  - Body height decreased [Unknown]
  - Off label use [Unknown]
